FAERS Safety Report 25180976 (Version 1)
Quarter: 2025Q2

REPORT INFORMATION
  Report Type: Report from Study
  Country: US (occurrence: US)
  Receive Date: 20250409
  Receipt Date: 20250409
  Transmission Date: 20250717
  Serious: Yes (Other)
  Sender: ABBVIE
  Company Number: US-ABBVIE-6112071

PATIENT
  Age: 48 Year
  Sex: Male
  Weight: 65.8 kg

DRUGS (1)
  1. RINVOQ [Suspect]
     Active Substance: UPADACITINIB
     Indication: Rheumatoid arthritis
     Route: 048
     Dates: start: 20221201

REACTIONS (2)
  - Arthralgia [Recovering/Resolving]
  - Eye operation [Unknown]

NARRATIVE: CASE EVENT DATE: 20240901
